FAERS Safety Report 8916000 (Version 2)
Quarter: 2012Q4

REPORT INFORMATION
  Report Type: 
  Country: JP (occurrence: JP)
  Receive Date: 20121119
  Receipt Date: 20121121
  Transmission Date: 20130627
  Serious: Yes (Hospitalization)
  Sender: FDA-Public Use
  Company Number: JP-SANOFI-AVENTIS-2012SA082683

PATIENT
  Age: 78 Year
  Sex: Male
  Weight: 60 kg

DRUGS (3)
  1. PLAVIX [Suspect]
     Indication: MULTIPLE CEREBRAL INFARCTION
     Route: 048
     Dates: start: 20120817, end: 20120823
  2. AMLODIPINE [Concomitant]
     Route: 048
  3. OMEPRAZOLE [Concomitant]

REACTIONS (5)
  - Upper respiratory tract inflammation [Unknown]
  - Pyrexia [Recovered/Resolved]
  - C-reactive protein increased [Unknown]
  - Rash [Recovering/Resolving]
  - Pruritus [Recovering/Resolving]
